FAERS Safety Report 5255247-1 (Version None)
Quarter: 2007Q1

REPORT INFORMATION
  Report Type: 
  Country: None (occurrence: None)
  Receive Date: 20070305
  Receipt Date: 20070227
  Transmission Date: 20070707
  Serious: Yes (Disabling)
  Sender: FDA-Public Use
  Company Number: BR-AVENTIS-200711591GDDC

PATIENT
  Age: 13 Year
  Sex: Female
  Weight: 47 kg

DRUGS (4)
  1. LANTUS [Suspect]
     Route: 058
     Dates: start: 20061201
  2. LANTUS [Suspect]
     Route: 058
     Dates: start: 20070214, end: 20070215
  3. LANTUS [Suspect]
     Route: 058
     Dates: start: 20070216
  4. AUTOPEN INSULIN INJECTION PEN [Suspect]

REACTIONS (4)
  - HYPERGLYCAEMIA [None]
  - PHARMACEUTICAL PRODUCT COMPLAINT [None]
  - POLYDIPSIA [None]
  - VOMITING [None]
